FAERS Safety Report 6064671-9 (Version None)
Quarter: 2009Q1

REPORT INFORMATION
  Report Type: 
  Country: None (occurrence: None)
  Receive Date: 20090204
  Receipt Date: 20080429
  Transmission Date: 20090719
  Serious: No
  Sender: FDA-Public Use
  Company Number: A0722349A

PATIENT
  Age: 67 Year
  Sex: Male

DRUGS (13)
  1. ARIXTRA [Suspect]
     Indication: DEEP VEIN THROMBOSIS
     Dosage: 7.5MG PER DAY
     Route: 058
     Dates: start: 20080409
  2. MAGNESIUM OXIDE [Concomitant]
  3. ATIVAN [Concomitant]
  4. MORPHINE SULFATE [Concomitant]
  5. MAGIC MOUTHWASH [Concomitant]
  6. PHENERGAN HCL [Concomitant]
  7. DEXAMETHASONE [Concomitant]
  8. FISH OIL [Concomitant]
  9. LIPITOR [Concomitant]
  10. MULTI-VITAMIN [Concomitant]
  11. NEXIUM [Concomitant]
  12. ZETIA [Concomitant]
  13. METAMUCIL [Concomitant]

REACTIONS (2)
  - PYREXIA [None]
  - TREMOR [None]
